FAERS Safety Report 9243318 (Version 1)
Quarter: 2013Q2

REPORT INFORMATION
  Report Type: Spontaneous
  Country: FI (occurrence: FI)
  Receive Date: 20130419
  Receipt Date: 20130419
  Transmission Date: 20140414
  Serious: Yes (Hospitalization)
  Sender: FDA-Public Use
  Company Number: FI-TEVA-397898ISR

PATIENT
  Age: 55 Year
  Sex: Female

DRUGS (2)
  1. COTRIM FORTE [Suspect]
     Indication: PNEUMOCYSTIS JIROVECII PNEUMONIA
     Dosage: ON MONDAYS, WEDNESDAYS AND FRIDAYS FOR
     Route: 048
     Dates: start: 20130322
  2. CALCICHEW D3 FORTE [Concomitant]
     Route: 048

REACTIONS (5)
  - Pyrexia [Unknown]
  - Vomiting [Unknown]
  - Asthenia [Unknown]
  - Eczema [Unknown]
  - Drug hypersensitivity [Unknown]
